FAERS Safety Report 11004525 (Version 1)
Quarter: 2015Q2

REPORT INFORMATION
  Report Type: Spontaneous
  Country: US (occurrence: US)
  Receive Date: 20150409
  Receipt Date: 20150409
  Transmission Date: 20150821
  Serious: Yes (Other)
  Sender: FDA-Public Use
  Company Number: US-JNJFOC-20150403502

PATIENT
  Sex: Female

DRUGS (1)
  1. REMICADE [Suspect]
     Active Substance: INFLIXIMAB
     Indication: RHEUMATOID ARTHRITIS
     Dosage: ON IT FOR ABOUT 9 YEARS
     Route: 042
     Dates: end: 201503

REACTIONS (3)
  - Microangiopathy [Not Recovered/Not Resolved]
  - Demyelination [Not Recovered/Not Resolved]
  - White matter lesion [Not Recovered/Not Resolved]
